FAERS Safety Report 23735662 (Version 1)
Quarter: 2024Q2

REPORT INFORMATION
  Report Type: Spontaneous
  Country: US (occurrence: US)
  Receive Date: 20240412
  Receipt Date: 20240412
  Transmission Date: 20240716
  Serious: Yes (Hospitalization)
  Sender: FDA-Public Use
  Company Number: US-FEDSON, INC. (DBA REACX PHARMACEUTICALS)-2024FED00048

PATIENT
  Age: 78 Year
  Sex: Female

DRUGS (2)
  1. BUPRENORPHINE\NALOXONE [Suspect]
     Active Substance: BUPRENORPHINE\NALOXONE
     Indication: Drug withdrawal maintenance therapy
     Dosage: UNK
  2. BUPRENORPHINE\NALOXONE [Suspect]
     Active Substance: BUPRENORPHINE\NALOXONE
     Indication: Pain
     Dosage: UNK

REACTIONS (4)
  - Stress cardiomyopathy [Recovering/Resolving]
  - Cardiogenic shock [Recovered/Resolved]
  - Off label use [Not Recovered/Not Resolved]
  - Drug withdrawal syndrome [Unknown]
